FAERS Safety Report 23882862 (Version 2)
Quarter: 2024Q4

REPORT INFORMATION
  Report Type: Spontaneous
  Country: CA (occurrence: CA)
  Receive Date: 20240522
  Receipt Date: 20241109
  Transmission Date: 20250115
  Serious: Yes (Hospitalization, Other)
  Sender: CELLTRION
  Company Number: CA-PFIZER INC-202300215105

PATIENT

DRUGS (5)
  1. INFLECTRA [Suspect]
     Active Substance: INFLIXIMAB-DYYB
     Indication: Psoriatic arthropathy
     Dosage: 3 MG/KG, WEEKS 0,2 AND 6 FOR INDUCTION AND 8WEEKS FOR MAINTENANCE
     Route: 042
     Dates: start: 20230624
  2. INFLECTRA [Suspect]
     Active Substance: INFLIXIMAB-DYYB
     Dosage: 3 MG/KG, WEEKS 0,2 AND 6 FOR INDUCTION AND 8WEEKS FOR MAINTENANCE
     Route: 042
     Dates: start: 20240322
  3. INFLECTRA [Suspect]
     Active Substance: INFLIXIMAB-DYYB
     Dosage: 3 MG/KG, WEEKS 0,2 AND 6 FOR INDUCTION AND 8WEEKS FOR MAINTENANCE
     Route: 042
     Dates: start: 20240905
  4. COLCHICINE [Concomitant]
     Active Substance: COLCHICINE
     Dosage: 2X/DAY
     Dates: start: 202207
  5. COUMADIN [Concomitant]
     Active Substance: WARFARIN SODIUM
     Dosage: UNK

REACTIONS (4)
  - Condition aggravated [Not Recovered/Not Resolved]
  - Trigger finger [Unknown]
  - Infection [Not Recovered/Not Resolved]
  - Off label use [Unknown]

NARRATIVE: CASE EVENT DATE: 20230624
